FAERS Safety Report 19788908 (Version 1)
Quarter: 2021Q3

REPORT INFORMATION
  Report Type: Report from Study
  Country: MX (occurrence: MX)
  Receive Date: 20210904
  Receipt Date: 20210904
  Transmission Date: 20211014
  Serious: Yes (Other)
  Sender: FDA-Public Use
  Company Number: NVSC2021MX201146

PATIENT
  Sex: Female
  Weight: 42 kg

DRUGS (2)
  1. EXFORGE HCT [Suspect]
     Active Substance: AMLODIPINE BESYLATE\HYDROCHLOROTHIAZIDE\VALSARTAN
     Indication: CARDIAC MURMUR
     Dosage: 1 DF, QD (5/160/12.5 MG)
     Route: 048
  2. EXFORGE HCT [Suspect]
     Active Substance: AMLODIPINE BESYLATE\HYDROCHLOROTHIAZIDE\VALSARTAN
     Indication: PAIN

REACTIONS (4)
  - Gait disturbance [Recovered/Resolved with Sequelae]
  - Hip fracture [Unknown]
  - Off label use [Unknown]
  - Fall [Unknown]
